FAERS Safety Report 23977965 (Version 1)
Quarter: 2024Q2

REPORT INFORMATION
  Report Type: Spontaneous
  Country: CN (occurrence: CN)
  Receive Date: 20240614
  Receipt Date: 20240614
  Transmission Date: 20240716
  Serious: Yes (Hospitalization)
  Sender: FDA-Public Use
  Company Number: CN-SA-SAC20240613000739

PATIENT
  Age: 35 Year
  Sex: Male
  Weight: 67 kg

DRUGS (1)
  1. OXALIPLATIN [Suspect]
     Active Substance: OXALIPLATIN
     Indication: Colon cancer
     Dosage: 200 MG, QD
     Route: 041
     Dates: start: 20240521, end: 20240521

REACTIONS (3)
  - Palpitations [Recovering/Resolving]
  - Flushing [Recovering/Resolving]
  - Pyrexia [Recovering/Resolving]

NARRATIVE: CASE EVENT DATE: 20240521
